FAERS Safety Report 8724880 (Version 5)
Quarter: 2014Q4

REPORT INFORMATION
  Report Type: Report from Study
  Country: CA (occurrence: CA)
  Receive Date: 20120815
  Receipt Date: 20141030
  Transmission Date: 20150529
  Serious: Yes (Other)
  Sender: FDA-Public Use
  Company Number: CA-ROCHE-1100213

PATIENT
  Sex: Female
  Weight: 56.75 kg

DRUGS (6)
  1. ACTEMRA [Suspect]
     Active Substance: TOCILIZUMAB
     Indication: RHEUMATOID ARTHRITIS
     Dosage: LAST INFUSION PRIOR TO SAE ON 26/JUN/2012
     Route: 042
     Dates: start: 20120222
  2. TYLENOL [Concomitant]
     Active Substance: ACETAMINOPHEN
  3. METHOTREXATE [Concomitant]
     Active Substance: METHOTREXATE
  4. FOSAMAX [Concomitant]
     Active Substance: ALENDRONATE SODIUM
  5. DICLOFENAC [Concomitant]
     Active Substance: DICLOFENAC
  6. ACTEMRA [Suspect]
     Active Substance: TOCILIZUMAB
     Route: 042
     Dates: start: 20130716

REACTIONS (6)
  - Wound [Unknown]
  - Drug ineffective [Unknown]
  - Osteoporosis [Not Recovered/Not Resolved]
  - Throat irritation [Not Recovered/Not Resolved]
  - Oral mucosal eruption [Not Recovered/Not Resolved]
  - Subcutaneous abscess [Unknown]

NARRATIVE: CASE EVENT DATE: 2014
